FAERS Safety Report 5334745-6 (Version None)
Quarter: 2007Q2

REPORT INFORMATION
  Report Type: 
  Country: None (occurrence: None)
  Receive Date: 20070521
  Receipt Date: 20070511
  Transmission Date: 20071010
  Serious: Yes (Death, Hospitalization)
  Sender: FDA-Public Use
  Company Number: 2007-00298

PATIENT
  Age: 68 Year
  Sex: Female
  Weight: 132.9 kg

DRUGS (30)
  1. VELCADE [Suspect]
     Indication: MYELODYSPLASTIC SYNDROME
     Dosage: 1.50 MG/M2, INTRAVENOUS
     Route: 042
     Dates: start: 20061211, end: 20070131
  2. QUININE SULFATE [Concomitant]
  3. BUMEX [Concomitant]
  4. ARIMIDEX [Concomitant]
  5. CELEBREX [Concomitant]
  6. LEVOXYL [Concomitant]
  7. PLAVIX [Concomitant]
  8. CATAPRESS-TTS (CLONIDINE) [Concomitant]
  9. GLIPIZIDE [Concomitant]
  10. PROTONIX [Concomitant]
  11. FLEXERIL [Concomitant]
  12. DICYCLOMINE HCL [Concomitant]
  13. METOPROLOL TARTRATE [Concomitant]
  14. NPH INSULIN (INSULIN INJECTION, ISOPHANE) [Concomitant]
  15. ALPHAGAN [Concomitant]
  16. XALATAN [Concomitant]
  17. HUMALOG [Concomitant]
  18. FENTANYL (RENTANYL) [Concomitant]
  19. PERCOCET [Concomitant]
  20. VITAMIN B12 [Concomitant]
  21. VITAMIN E (VEGETABLE OIL) [Concomitant]
  22. STOOL SOFTENER (DOCUSATE SODIUM) [Concomitant]
  23. ASCORBIC ACID [Concomitant]
  24. MAGNESIUM (MAGNESIUM) [Concomitant]
  25. ARTICHOKE [Concomitant]
  26. LUTEINE (PROGESTERONE) [Concomitant]
  27. GINGER ROOT (GINGER) [Concomitant]
  28. GARLIC (GARLIC) [Concomitant]
  29. B6 (PYRIDOXINE HYDROCHLORIDE) [Concomitant]
  30. GINKGO BILOBA (GINKGO BILOBA) [Concomitant]

REACTIONS (22)
  - ASPIRATION [None]
  - ASTHMA [None]
  - ATRIAL FIBRILLATION [None]
  - CARDIAC FAILURE CONGESTIVE [None]
  - CATHETER RELATED COMPLICATION [None]
  - CHRONIC OBSTRUCTIVE PULMONARY DISEASE [None]
  - CONFUSIONAL STATE [None]
  - EPISTAXIS [None]
  - HAEMATOCRIT DECREASED [None]
  - HAEMATURIA [None]
  - HAEMORRHAGE [None]
  - HYPOGLYCAEMIA [None]
  - INJURY [None]
  - MITRAL VALVE INCOMPETENCE [None]
  - ORAL INTAKE REDUCED [None]
  - PLATELET COUNT DECREASED [None]
  - PNEUMONIA [None]
  - RESPIRATORY ARREST [None]
  - TACHYCARDIA [None]
  - TRICUSPID VALVE INCOMPETENCE [None]
  - UPPER RESPIRATORY TRACT INFECTION [None]
  - VOMITING [None]
